FAERS Safety Report 9851040 (Version 1)
Quarter: 2014Q1

REPORT INFORMATION
  Report Type: Spontaneous
  Country: US (occurrence: US)
  Receive Date: 20140128
  Receipt Date: 20140128
  Transmission Date: 20141002
  Serious: No
  Sender: FDA-Public Use
  Company Number: US-DYAX CORP.-2013DX000083

PATIENT
  Age: 52 Year
  Sex: Female

DRUGS (18)
  1. KALBITOR [Suspect]
     Indication: HEREDITARY ANGIOEDEMA
     Route: 058
  2. KALBITOR [Suspect]
     Route: 058
     Dates: start: 20130413, end: 20130413
  3. ATENOLOL [Concomitant]
     Indication: PRODUCT USED FOR UNKNOWN INDICATION
     Route: 048
  4. RIBAVIRIN [Concomitant]
     Indication: LIVER DISORDER
     Route: 048
  5. PEGASYS [Concomitant]
     Indication: LIVER DISORDER
     Route: 058
  6. BENADRYL [Concomitant]
     Indication: HEREDITARY ANGIOEDEMA
     Route: 048
  7. HYDROCHLOROTHIAZIDE [Concomitant]
     Indication: HYPERTENSION
     Route: 048
  8. OXYCONTIN [Concomitant]
     Indication: PAIN
     Route: 048
  9. METAXALONE [Concomitant]
     Indication: PAIN
     Route: 048
  10. SEROQUEL [Concomitant]
     Indication: HALLUCINATION
     Route: 048
  11. IRON C [Concomitant]
     Indication: PRODUCT USED FOR UNKNOWN INDICATION
  12. POTASSIUM OTC [Concomitant]
     Indication: PRODUCT USED FOR UNKNOWN INDICATION
     Route: 048
  13. VITAMIN C OTC [Concomitant]
     Indication: PRODUCT USED FOR UNKNOWN INDICATION
  14. VITAMIN B12 [Concomitant]
     Indication: PRODUCT USED FOR UNKNOWN INDICATION
     Route: 060
  15. ASPIRIN [Concomitant]
     Indication: PRODUCT USED FOR UNKNOWN INDICATION
     Route: 048
  16. ATIVAN [Concomitant]
     Indication: PRODUCT USED FOR UNKNOWN INDICATION
     Route: 048
     Dates: start: 2013
  17. MAGNESIUM [Concomitant]
     Indication: PRODUCT USED FOR UNKNOWN INDICATION
  18. EPIPEN [Concomitant]
     Indication: ALLERGY TO ARTHROPOD BITE

REACTIONS (2)
  - Palpitations [Unknown]
  - Anxiety [Unknown]
